FAERS Safety Report 5156713-X (Version None)
Quarter: 2006Q4

REPORT INFORMATION
  Report Type: 
  Country: None (occurrence: None)
  Receive Date: 20061115
  Receipt Date: 20061107
  Transmission Date: 20070319
  Serious: Yes (Other)
  Sender: FDA-Public Use
  Company Number: 2006083164

PATIENT
  Sex: Female

DRUGS (2)
  1. LIPITOR [Suspect]
     Dosage: 40 MG (40 MG, 1 IN 1 D)
  2. ZOLOFT [Suspect]
     Indication: DRUG INTERACTION POTENTIATION
     Dosage: 100 MG (50 MG, 2 IN 1 D)

REACTIONS (6)
  - HEADACHE [None]
  - HYPOAESTHESIA [None]
  - MYALGIA [None]
  - NAUSEA [None]
  - OFF LABEL USE [None]
  - PAIN IN EXTREMITY [None]
